FAERS Safety Report 18389602 (Version 1)
Quarter: 2020Q4

REPORT INFORMATION
  Report Type: Spontaneous
  Country: GB (occurrence: GB)
  Receive Date: 20201015
  Receipt Date: 20201015
  Transmission Date: 20210114
  Serious: Yes (Disabling, Other)
  Sender: FDA-Public Use
  Company Number: GB-MYLANLABS-2020M1086588

PATIENT
  Age: 35 Year
  Sex: Female
  Weight: 44 kg

DRUGS (1)
  1. ARIPIPRAZOLE. [Suspect]
     Active Substance: ARIPIPRAZOLE
     Indication: PSYCHOTIC DISORDER
     Dosage: 5 MILLIGRAM
     Route: 048
     Dates: start: 20190510, end: 20190520

REACTIONS (14)
  - Peripheral coldness [Unknown]
  - Muscular weakness [Unknown]
  - Myalgia [Unknown]
  - Abdominal discomfort [Unknown]
  - Feeling hot [Unknown]
  - Depressed mood [Unknown]
  - Delusion [Unknown]
  - Malaise [Unknown]
  - Sleep disorder [Unknown]
  - Nausea [Unknown]
  - Dizziness [Unknown]
  - Decreased appetite [Unknown]
  - Dysgeusia [Unknown]
  - Anxiety [Not Recovered/Not Resolved]

NARRATIVE: CASE EVENT DATE: 20190510
